FAERS Safety Report 9157412 (Version 2)
Quarter: 2013Q2

REPORT INFORMATION
  Report Type: Spontaneous
  Country: US (occurrence: US)
  Receive Date: 20130312
  Receipt Date: 20130606
  Transmission Date: 20140414
  Serious: Yes (Hospitalization, Other)
  Sender: FDA-Public Use
  Company Number: US-SANOFI-AVENTIS-2013SA023111

PATIENT
  Age: 74 Year
  Sex: Female

DRUGS (2)
  1. APIDRA SOLOSTAR [Suspect]
     Indication: TYPE 2 DIABETES MELLITUS
     Dosage: 1-15 UNITS
     Route: 058
  2. SOLOSTAR [Suspect]
     Indication: TYPE 2 DIABETES MELLITUS

REACTIONS (7)
  - Pneumonia [Unknown]
  - Clostridium difficile infection [Unknown]
  - Pancreatic cyst [Unknown]
  - Clostridium difficile infection [Unknown]
  - Hypoglycaemia [Unknown]
  - Weight decreased [Unknown]
  - Weight decreased [Unknown]
